FAERS Safety Report 21690426 (Version 2)
Quarter: 2022Q4

REPORT INFORMATION
  Report Type: Spontaneous
  Country: JP (occurrence: JP)
  Receive Date: 20221206
  Receipt Date: 20221212
  Transmission Date: 20230113
  Serious: No
  Sender: FDA-Public Use
  Company Number: JP-MSD-2211JPN003426J

PATIENT
  Age: 73 Year
  Sex: Female

DRUGS (3)
  1. LAGEVRIO [Suspect]
     Active Substance: MOLNUPIRAVIR
     Indication: COVID-19 treatment
     Dosage: 1600 MILLIGRAM, BID
     Route: 048
     Dates: start: 20221121, end: 20221122
  2. ACETAMINOPHEN\BROMISOVAL\DIHYDROCODEINE PHOSPHATE\DIPHENHYDRAMINE SALI [Concomitant]
     Active Substance: ACETAMINOPHEN\BROMISOVAL\DIHYDROCODEINE PHOSPHATE\DIPHENHYDRAMINE SALICYLATE\DYPHYLLINE\METHYLEPHEDR
     Dosage: 2 DOSAGE FORM, WHEN COUGH OCCURS
     Route: 048
  3. ISODINE [Concomitant]
     Active Substance: POVIDONE-IODINE
     Dosage: 30 MILLILITER, TWICE TO FIVE TIMES DAILY
     Route: 049

REACTIONS (6)
  - Photopsia [Recovered/Resolved]
  - Choking sensation [Recovered/Resolved]
  - Dizziness [Recovered/Resolved]
  - Nausea [Recovered/Resolved]
  - Headache [Recovered/Resolved]
  - Overdose [Unknown]

NARRATIVE: CASE EVENT DATE: 20221121
